FAERS Safety Report 14011702 (Version 4)
Quarter: 2018Q3

REPORT INFORMATION
  Report Type: Report from Study
  Country: JP (occurrence: JP)
  Receive Date: 20170926
  Receipt Date: 20180917
  Transmission Date: 20181010
  Serious: Yes (Hospitalization, Disabling)
  Sender: FDA-Public Use
  Company Number: JP-ACTELION-A-CH2017-159624

PATIENT
  Age: 77 Year
  Sex: Female

DRUGS (30)
  1. REVATIO [Concomitant]
     Active Substance: SILDENAFIL CITRATE
  2. LASIX [Concomitant]
     Active Substance: FUROSEMIDE
  3. CINAL [Concomitant]
     Active Substance: ASCORBIC ACID\CALCIUM PANTOTHENATE
  4. OMARIGLIPTIN [Concomitant]
     Active Substance: OMARIGLIPTIN
  5. OPSUMIT [Suspect]
     Active Substance: MACITENTAN
     Indication: PULMONARY ARTERIAL HYPERTENSION
     Dosage: 10 MG, QD
     Route: 048
     Dates: start: 20160613, end: 20170328
  6. FERROMIA [Concomitant]
     Active Substance: SODIUM FERROUS CITRATE
  7. SAMSCA [Concomitant]
     Active Substance: TOLVAPTAN
  8. VASOLAN [Concomitant]
     Active Substance: VERAPAMIL HYDROCHLORIDE
  9. MYSLEE [Concomitant]
     Active Substance: ZOLPIDEM TARTRATE
  10. MILRILA [Concomitant]
     Active Substance: MILRINONE
  11. CRESTOR [Concomitant]
     Active Substance: ROSUVASTATIN CALCIUM
  12. HEPARIN CALCIUM [Concomitant]
     Active Substance: HEPARIN CALCIUM
  13. NORADRENALINE [Concomitant]
     Active Substance: NOREPINEPHRINE
  14. ONOACT [Concomitant]
     Active Substance: LANDIOLOL HYDROCHLORIDE
  15. WARFARIN [Concomitant]
     Active Substance: WARFARIN
  16. TAKECAB [Concomitant]
     Active Substance: VONOPRAZAN FUMURATE
  17. AIMIX [Concomitant]
     Active Substance: AMLODIPINE BESYLATE\IRBESARTAN
  18. SALAGEN [Concomitant]
     Active Substance: PILOCARPINE HYDROCHLORIDE
  19. LUNESTA [Concomitant]
     Active Substance: ESZOPICLONE
  20. HEPARIN SODIUM. [Concomitant]
     Active Substance: HEPARIN SODIUM
  21. PREDNISOLONE. [Concomitant]
     Active Substance: PREDNISOLONE
  22. HYPEN [Concomitant]
  23. DOBUTREX [Concomitant]
     Active Substance: DOBUTAMINE HYDROCHLORIDE
  24. JANUVIA [Concomitant]
     Active Substance: SITAGLIPTIN PHOSPHATE
  25. OPSUMIT [Suspect]
     Active Substance: MACITENTAN
     Dosage: 10 MG, QD
     Route: 048
     Dates: start: 20170401, end: 20171008
  26. URSO [Concomitant]
     Active Substance: URSODIOL
  27. MAINTATE [Concomitant]
     Active Substance: BISOPROLOL FUMARATE
  28. ALDACTONE [Concomitant]
     Active Substance: SPIRONOLACTONE
  29. KAKODIN [Concomitant]
  30. SILECE [Concomitant]
     Active Substance: FLUNITRAZEPAM

REACTIONS (10)
  - Aortic valve stenosis [Recovering/Resolving]
  - Pneumonia bacterial [Recovering/Resolving]
  - Malaise [Recovering/Resolving]
  - Iron deficiency anaemia [Recovered/Resolved]
  - Chills [Recovering/Resolving]
  - Cough [Recovering/Resolving]
  - Inflammation [Recovering/Resolving]
  - Oxygen saturation decreased [Recovering/Resolving]
  - Aortic valve replacement [Recovering/Resolving]
  - Pyrexia [Recovering/Resolving]

NARRATIVE: CASE EVENT DATE: 20170130
